FAERS Safety Report 25273746 (Version 1)
Quarter: 2025Q2

REPORT INFORMATION
  Report Type: Spontaneous
  Country: CZ (occurrence: CZ)
  Receive Date: 20250506
  Receipt Date: 20250506
  Transmission Date: 20250716
  Serious: Yes (Hospitalization, Other)
  Sender: NOVARTIS
  Company Number: CZ-002147023-NVSC2025CZ072022

PATIENT
  Sex: Male
  Weight: 116 kg

DRUGS (6)
  1. LEQVIO [Suspect]
     Active Substance: INCLISIRAN SODIUM
     Indication: Hypercholesterolaemia
     Route: 065
     Dates: start: 202306
  2. LEQVIO [Suspect]
     Active Substance: INCLISIRAN SODIUM
     Indication: Hypertriglyceridaemia
     Route: 065
     Dates: start: 202309
  3. ATORVASTATIN [Concomitant]
     Active Substance: ATORVASTATIN
     Indication: Hypercholesterolaemia
     Route: 065
     Dates: end: 2023
  4. ATORVASTATIN [Concomitant]
     Active Substance: ATORVASTATIN
     Indication: Hypertriglyceridaemia
     Route: 065
     Dates: start: 2023
  5. EZETIMIBE [Concomitant]
     Active Substance: EZETIMIBE
     Indication: Hypercholesterolaemia
     Route: 065
  6. EZETIMIBE [Concomitant]
     Active Substance: EZETIMIBE
     Indication: Hypertriglyceridaemia

REACTIONS (8)
  - Chest pain [Unknown]
  - Acute coronary syndrome [Unknown]
  - Blood triglycerides increased [Recovering/Resolving]
  - Restenosis [Unknown]
  - Complicated fracture [Not Recovered/Not Resolved]
  - Respiratory tract infection [Unknown]
  - Blood cholesterol increased [Recovering/Resolving]
  - Deformity thorax [Not Recovered/Not Resolved]

NARRATIVE: CASE EVENT DATE: 20230101
